FAERS Safety Report 5445901-0 (Version None)
Quarter: 2007Q3

REPORT INFORMATION
  Report Type: 
  Country: None (occurrence: None)
  Receive Date: 20070904
  Receipt Date: 20070821
  Transmission Date: 20080115
  Serious: Yes (Hospitalization, Other)
  Sender: FDA-Public Use
  Company Number: 2007US-09537

PATIENT
  Age: 89 Year
  Sex: Female

DRUGS (6)
  1. ISOPTIN SR [Suspect]
     Indication: DRUG USE FOR UNKNOWN INDICATION
     Dosage: 240 MG, QD, ORAL
     Route: 048
     Dates: end: 20070721
  2. ATENOLOL [Suspect]
     Indication: DRUG USE FOR UNKNOWN INDICATION
     Dosage: 50 MG, 2 TABLETS IN 1 DOSE, ORAL
     Route: 048
     Dates: end: 20070721
  3. LOSARTAN POTASSIUM [Suspect]
     Indication: DRUG USE FOR UNKNOWN INDICATION
     Dosage: ORAL
     Route: 048
     Dates: end: 20070721
  4. FUROSEMIDE [Suspect]
     Indication: DRUG USE FOR UNKNOWN INDICATION
     Dosage: 40 MG, QD, ORAL
     Route: 048
  5. ASPIRIN [Concomitant]
  6. ATORVASTATIN CALCIUM [Concomitant]

REACTIONS (11)
  - AORTIC STENOSIS [None]
  - ARRHYTHMIA [None]
  - ATRIAL FIBRILLATION [None]
  - BRADYCARDIA [None]
  - CARDIAC MURMUR [None]
  - CARDIOMEGALY [None]
  - HAEMORRHOIDAL HAEMORRHAGE [None]
  - HEART RATE IRREGULAR [None]
  - HYPOTENSION [None]
  - NODAL RHYTHM [None]
  - SYNCOPE [None]
